FAERS Safety Report 5197859-X (Version None)
Quarter: 2006Q4

REPORT INFORMATION
  Report Type: 
  Country: None (occurrence: None)
  Receive Date: 20061228
  Receipt Date: 20061213
  Transmission Date: 20070319
  Serious: Yes (Death)
  Sender: FDA-Public Use
  Company Number: 150930USA

PATIENT
  Sex: 0

DRUGS (1)
  1. PROMPT PHENYTOIN SODIUM [Suspect]
     Indication: CONVULSION

REACTIONS (6)
  - CHORIOAMNIONITIS [None]
  - DRUG EXPOSURE DURING PREGNANCY [None]
  - FOETAL DISORDER [None]
  - SEPSIS [None]
  - STILLBIRTH [None]
  - TOXIC EPIDERMAL NECROLYSIS [None]
